FAERS Safety Report 7554288-9 (Version None)
Quarter: 2011Q2

REPORT INFORMATION
  Report Type: 
  Country: None (occurrence: None)
  Receive Date: 20110617
  Receipt Date: 20110606
  Transmission Date: 20111010
  Serious: Yes (Other)
  Sender: FDA-Public Use
  Company Number: US-CELGENEUS-ABX06-06-0174

PATIENT
  Sex: Female
  Weight: 65.376 kg

DRUGS (8)
  1. HERCEPTIN [Suspect]
     Dosage: DOSING WK1 136 MG, WK2 156 MG, WK3 265 MG
     Route: 051
     Dates: start: 20050607, end: 20060327
  2. DECADRON [Concomitant]
     Indication: PROPHYLAXIS OF NAUSEA AND VOMITING
     Dosage: 10 MILLIGRAM
     Route: 051
     Dates: start: 20050705, end: 20060327
  3. NEUPOGEN [Concomitant]
     Indication: NEUTROPENIA
     Route: 058
     Dates: start: 20050620, end: 20060329
  4. PERCOCET [Concomitant]
     Indication: PAIN
     Dosage: 5 MILLIGRAM
     Route: 048
     Dates: start: 20050613
  5. ABRAXANE [Suspect]
     Dosage: ABRAXANEA? DELAYED 1 WEEK
     Route: 041
     Dates: start: 20050607
  6. PRILOSEC [Concomitant]
     Dosage: 40 MILLIGRAM
     Route: 048
     Dates: start: 20060206
  7. ZOFRAN [Concomitant]
     Indication: PROPHYLAXIS OF NAUSEA AND VOMITING
     Dosage: 32 MILLIGRAM
     Route: 051
     Dates: start: 20050705, end: 20060327
  8. IMODIUM [Concomitant]
     Dosage: 2 MILLIGRAM
     Route: 048
     Dates: start: 20060130

REACTIONS (1)
  - LEFT VENTRICULAR DYSFUNCTION [None]
